FAERS Safety Report 15567900 (Version 3)
Quarter: 2018Q4

REPORT INFORMATION
  Report Type: Report from Study
  Country: MY (occurrence: MY)
  Receive Date: 20181030
  Receipt Date: 20181120
  Transmission Date: 20190205
  Serious: Yes (Hospitalization)
  Sender: FDA-Public Use
  Company Number: MY-REGENERON PHARMACEUTICALS, INC.-2018-24011

PATIENT

DRUGS (9)
  1. BENADRYL [Concomitant]
     Active Substance: DIPHENHYDRAMINE HYDROCHLORIDE
     Indication: DISEASE PROGRESSION
     Dosage: 10 ML, TID
     Route: 048
     Dates: start: 20180512, end: 20180520
  2. ZINACEF [Concomitant]
     Active Substance: CEFUROXIME SODIUM
     Indication: DISEASE PROGRESSION
     Dosage: 750 MG, Q8H
     Route: 042
     Dates: start: 20180512, end: 20180512
  3. MEROPENEM. [Concomitant]
     Active Substance: MEROPENEM
     Indication: DISEASE PROGRESSION
     Dosage: 1000 MG, TID
     Route: 042
     Dates: start: 20180512, end: 20180518
  4. PARACETAMOL [Concomitant]
     Active Substance: ACETAMINOPHEN
     Indication: PRODUCT USED FOR UNKNOWN INDICATION
  5. IBERET FOLIC [Concomitant]
     Indication: ANAEMIA
     Dosage: 500 MG, QD
     Route: 048
     Dates: start: 20180418, end: 20180425
  6. CEMIPLIMAB [Suspect]
     Active Substance: CEMIPLIMAB
     Indication: NON-SMALL CELL LUNG CANCER
     Dosage: 250 MG, EVERY 3 WEEKS
     Route: 042
     Dates: start: 20180425, end: 20180425
  7. FLUIMUCIL [Concomitant]
     Active Substance: ACETYLCYSTEINE
     Indication: DISEASE PROGRESSION
     Dosage: 600 MG, BID
     Route: 048
     Dates: start: 20180512, end: 20180524
  8. COMBIVENT RESPIMAT [Concomitant]
     Active Substance: ALBUTEROL SULFATE\IPRATROPIUM BROMIDE
     Indication: DISEASE PROGRESSION
     Dosage: 2.5 MG, QID
     Route: 055
     Dates: start: 20180512, end: 20180520
  9. SIDELEX [Concomitant]
     Indication: COUGH
     Dosage: 10 ML, Q8H
     Route: 048
     Dates: start: 20180430, end: 20180504

REACTIONS (1)
  - Dyspnoea [Recovered/Resolved]

NARRATIVE: CASE EVENT DATE: 20180511
